FAERS Safety Report 5817975-6 (Version None)
Quarter: 2008Q3

REPORT INFORMATION
  Report Type: 
  Country: None (occurrence: None)
  Receive Date: 20080722
  Receipt Date: 20080711
  Transmission Date: 20090109
  Serious: Yes (Hospitalization)
  Sender: FDA-Public Use
  Company Number: US-BOEHRINGER INGELHEIM GMBH, GERMANY-2007-BP-24760YA

PATIENT
  Sex: Male

DRUGS (8)
  1. TAMSULOSIN HCL [Suspect]
     Indication: DRUG USE FOR UNKNOWN INDICATION
     Route: 065
     Dates: start: 20070804, end: 20071027
  2. SOLIFENACIN (TAMSULOSIN REFERENCE) [Suspect]
     Indication: DRUG USE FOR UNKNOWN INDICATION
     Route: 065
     Dates: start: 20070804, end: 20071027
  3. ATENOLOL [Concomitant]
     Dates: start: 20040101
  4. ASPIRIN [Concomitant]
     Dates: start: 20050101
  5. LIPITOR [Concomitant]
  6. LISINOPRIL [Concomitant]
  7. NEXIUM [Concomitant]
  8. WELLBUTRIN [Concomitant]

REACTIONS (1)
  - MYOCARDIAL INFARCTION [None]
